FAERS Safety Report 11403767 (Version 2)
Quarter: 2016Q1

REPORT INFORMATION
  Report Type: Spontaneous
  Country: US (occurrence: US)
  Receive Date: 20150821
  Receipt Date: 20160203
  Transmission Date: 20160525
  Serious: No
  Sender: FDA-Public Use
  Company Number: US-JNJFOC-20150807811

PATIENT
  Age: 22 Year
  Sex: Male
  Weight: 63.5 kg

DRUGS (3)
  1. INVEGA SUSTENNA [Suspect]
     Active Substance: PALIPERIDONE PALMITATE
     Indication: SCHIZOPHRENIA
     Route: 030
     Dates: start: 201304
  2. INVEGA SUSTENNA [Suspect]
     Active Substance: PALIPERIDONE PALMITATE
     Indication: SCHIZOPHRENIA
     Route: 030
     Dates: start: 201304
  3. GABAPENTIN. [Concomitant]
     Active Substance: GABAPENTIN
     Indication: ANXIETY
     Route: 065

REACTIONS (7)
  - Tobacco user [Not Recovered/Not Resolved]
  - Euphoric mood [Not Recovered/Not Resolved]
  - Injection site pain [Recovered/Resolved]
  - Suspected counterfeit product [Unknown]
  - Boredom [Not Recovered/Not Resolved]
  - Neurotransmitter level altered [Unknown]
  - Weight increased [Not Recovered/Not Resolved]

NARRATIVE: CASE EVENT DATE: 201304
